FAERS Safety Report 4919468-7 (Version None)
Quarter: 2006Q1

REPORT INFORMATION
  Report Type: 
  Country: None (occurrence: None)
  Receive Date: 20060222
  Receipt Date: 20050518
  Transmission Date: 20060701
  Serious: Yes (Death, Hospitalization)
  Sender: FDA-Public Use
  Company Number: US-MERCK-0505USA02280

PATIENT
  Age: 83 Year
  Sex: Female
  Weight: 80 kg

DRUGS (4)
  1. VIOXX [Suspect]
     Indication: ARTHRITIS
     Route: 048
     Dates: end: 20010301
  2. VIOXX [Suspect]
     Route: 048
     Dates: start: 20010111
  3. VIOXX [Suspect]
     Indication: PAIN
     Route: 048
     Dates: end: 20010301
  4. VIOXX [Suspect]
     Route: 048
     Dates: start: 20010111

REACTIONS (2)
  - CORONARY ARTERY DISEASE [None]
  - MYOCARDIAL INFARCTION [None]
